FAERS Safety Report 8442991-8 (Version None)
Quarter: 2012Q2

REPORT INFORMATION
  Report Type: 
  Country: None (occurrence: None)
  Receive Date: 20120615
  Receipt Date: 20120605
  Transmission Date: 20120825
  Serious: Yes (Life-Threatening, Hospitalization)
  Sender: FDA-Public Use
  Company Number: IT-B.I. PHARMACEUTICALS,INC./RIDGEFIELD-2012-BP-13288YA

PATIENT
  Sex: Female

DRUGS (1)
  1. TAMSULOSIN HCL [Suspect]
     Indication: ANGIOGRAM
     Dosage: 0.4 MG
     Route: 048
     Dates: start: 20090101

REACTIONS (5)
  - COMA [None]
  - OFF LABEL USE [None]
  - URTICARIA [None]
  - ACUTE RESPIRATORY FAILURE [None]
  - ANGIOEDEMA [None]
